FAERS Safety Report 24146904 (Version 2)
Quarter: 2024Q3

REPORT INFORMATION
  Report Type: Spontaneous
  Country: NL (occurrence: NL)
  Receive Date: 20240729
  Receipt Date: 20240807
  Transmission Date: 20241016
  Serious: Yes (Life-Threatening, Hospitalization)
  Sender: AUROBINDO
  Company Number: NL-MLMSERVICE-20240711-PI127561-00072-1

PATIENT
  Age: 42 Year
  Sex: Female

DRUGS (4)
  1. BUPIVACAINE [Suspect]
     Active Substance: BUPIVACAINE
     Indication: Procedural pain
     Dosage: 6.25 MILLIGRAM, EVERY HOUR
     Route: 008
  2. SUFENTANIL [Concomitant]
     Active Substance: SUFENTANIL
     Indication: Procedural pain
     Dosage: 5 MICROGRAM, EVERY HOUR
     Route: 008
  3. PREGABALIN [Concomitant]
     Active Substance: PREGABALIN
     Indication: Procedural pain
     Dosage: UNK
     Route: 065
  4. ACETAMINOPHEN [Concomitant]
     Active Substance: ACETAMINOPHEN
     Indication: Procedural pain
     Dosage: UNK
     Route: 048

REACTIONS (1)
  - Pleural effusion [Recovered/Resolved]
